FAERS Safety Report 10212180 (Version 1)
Quarter: 2014Q2

REPORT INFORMATION
  Report Type: Spontaneous
  Country: US (occurrence: US)
  Receive Date: 20140602
  Receipt Date: 20140602
  Transmission Date: 20141212
  Serious: No
  Sender: FDA-Public Use
  Company Number: US-AMGEN-USASP2014035524

PATIENT
  Age: 60 Year
  Sex: Female

DRUGS (2)
  1. ENBREL [Suspect]
     Indication: PSORIASIS
     Dosage: 50 MG, QWK
     Route: 065
     Dates: start: 20040416
  2. METHOTREXATE [Concomitant]
     Dosage: 15 MG, QWK  IN DIVIDED DOSES
     Route: 048

REACTIONS (1)
  - Psoriasis [Not Recovered/Not Resolved]
